FAERS Safety Report 7737420-3 (Version None)
Quarter: 2011Q3

REPORT INFORMATION
  Report Type: 
  Country: None (occurrence: None)
  Receive Date: 20110908
  Receipt Date: 20110826
  Transmission Date: 20111222
  Serious: Yes (Death, Hospitalization)
  Sender: FDA-Public Use
  Company Number: US-GLAXOSMITHKLINE-A0810734A

PATIENT
  Age: 64 Year
  Sex: Male

DRUGS (2)
  1. AVANDIA [Suspect]
     Indication: DIABETES MELLITUS
     Dosage: 4MG PER DAY
     Route: 048
     Dates: start: 20030301, end: 20070701
  2. CELEBREX [Concomitant]
     Dosage: 200MG PER DAY
     Route: 048

REACTIONS (4)
  - MYOCARDIAL INFARCTION [None]
  - AMNESIA [None]
  - CARDIAC DISORDER [None]
  - DEATH [None]
